FAERS Safety Report 6424683-X (Version None)
Quarter: 2009Q4

REPORT INFORMATION
  Report Type: 
  Country: None (occurrence: None)
  Receive Date: 20091102
  Receipt Date: 20091102
  Transmission Date: 20100525
  Serious: No
  Sender: FDA-Public Use
  Company Number: None

PATIENT
  Age: 50 Year
  Sex: Female

DRUGS (1)
  1. NATALIZUMAB [Suspect]
     Indication: MULTIPLE SCLEROSIS
     Dosage: 300 MG OTHER IV
     Route: 042
     Dates: start: 20090713

REACTIONS (9)
  - AGITATION [None]
  - ANXIETY [None]
  - EYE PRURITUS [None]
  - INFUSION RELATED REACTION [None]
  - NAUSEA [None]
  - PRURITUS [None]
  - THROAT IRRITATION [None]
  - URTICARIA [None]
  - VOMITING [None]
